FAERS Safety Report 25445124 (Version 4)
Quarter: 2025Q3

REPORT INFORMATION
  Report Type: Spontaneous
  Country: JP (occurrence: JP)
  Receive Date: 20250617
  Receipt Date: 20250918
  Transmission Date: 20251020
  Serious: Yes (Hospitalization)
  Sender: MERCK SHARP & DOHME LLC
  Company Number: JP-009507513-2294562

PATIENT
  Age: 57 Year
  Sex: Male
  Weight: 73.8 kg

DRUGS (9)
  1. KEYTRUDA [Suspect]
     Active Substance: PEMBROLIZUMAB
     Indication: Gastric cancer
     Route: 041
     Dates: start: 20241004, end: 20241227
  2. Palonosetron IV infusion bag [Concomitant]
     Route: 065
  3. Dexate Injection [Concomitant]
     Route: 065
  4. OXALIPLATIN [Concomitant]
     Active Substance: OXALIPLATIN
     Route: 041
  5. VONOPRAZAN FUMARATE [Concomitant]
     Active Substance: VONOPRAZAN FUMARATE
     Route: 048
  6. Miya BM Tablets [Concomitant]
     Route: 048
  7. Racol NF enteral nutritional solution [Concomitant]
     Route: 065
  8. Rinderon VG ointment [Concomitant]
     Route: 065
  9. S-1 Taiho combination OD tabletsT20 [Concomitant]
     Route: 048

REACTIONS (1)
  - Hyperglycaemia [Recovering/Resolving]

NARRATIVE: CASE EVENT DATE: 20250328
